FAERS Safety Report 16044818 (Version 1)
Quarter: 2019Q1

REPORT INFORMATION
  Report Type: Report from Study
  Country: None (occurrence: US)
  Receive Date: 20190307
  Receipt Date: 20190307
  Transmission Date: 20190418
  Serious: Yes (Hospitalization)
  Sender: FDA-Public Use
  Company Number: US-ABBVIE-19K-163-2685990-00

PATIENT
  Sex: Female

DRUGS (1)
  1. VENCLEXTA [Suspect]
     Active Substance: VENETOCLAX
     Indication: CHRONIC LYMPHOCYTIC LEUKAEMIA
     Route: 048
     Dates: start: 20180515, end: 20190103

REACTIONS (5)
  - Cognitive disorder [Recovering/Resolving]
  - Balance disorder [Unknown]
  - Blunted affect [Recovering/Resolving]
  - Loss of personal independence in daily activities [Unknown]
  - Drug effect decreased [Not Recovered/Not Resolved]
